FAERS Safety Report 23140720 (Version 1)
Quarter: 2023Q4

REPORT INFORMATION
  Report Type: Spontaneous
  Country: US (occurrence: US)
  Receive Date: 20231103
  Receipt Date: 20231103
  Transmission Date: 20240110
  Serious: Yes (Other)
  Sender: FDA-Public Use
  Company Number: US-AMGEN-USASP2023191006

PATIENT
  Age: 63 Year
  Sex: Male

DRUGS (1)
  1. PROLIA [Suspect]
     Active Substance: DENOSUMAB
     Indication: Osteoporosis
     Dosage: 60 MILLIGRAM
     Route: 058
     Dates: start: 202209

REACTIONS (4)
  - Parathyroidectomy [Unknown]
  - Therapy non-responder [Unknown]
  - Ankle fracture [Unknown]
  - Fracture nonunion [Unknown]

NARRATIVE: CASE EVENT DATE: 20230801
